FAERS Safety Report 7018590-1 (Version None)
Quarter: 2010Q3

REPORT INFORMATION
  Report Type: 
  Country: None (occurrence: None)
  Receive Date: 20100924
  Receipt Date: 20100915
  Transmission Date: 20110219
  Serious: Yes (Life-Threatening)
  Sender: FDA-Public Use
  Company Number: 018799

PATIENT
  Sex: Female
  Weight: 45 kg

DRUGS (8)
  1. NEUPRO [Suspect]
     Indication: PARKINSON'S DISEASE
     Dosage: (2 MG QD TRANSDERMAL), 4 MG QD TRANSDERMAL, 6 MG QD TRANSDERMAL
     Route: 062
     Dates: start: 20091007, end: 20091102
  2. NEUPRO [Suspect]
     Indication: PARKINSON'S DISEASE
     Dosage: (2 MG QD TRANSDERMAL), 4 MG QD TRANSDERMAL, 6 MG QD TRANSDERMAL
     Route: 062
     Dates: start: 20091103, end: 20100401
  3. NEUPRO [Suspect]
     Indication: PARKINSON'S DISEASE
     Dosage: (2 MG QD TRANSDERMAL), 4 MG QD TRANSDERMAL, 6 MG QD TRANSDERMAL
     Route: 062
     Dates: start: 20100402, end: 20100407
  4. NEUPRO [Suspect]
     Indication: PARKINSON'S DISEASE
     Dosage: (2 MG QD TRANSDERMAL), 4 MG QD TRANSDERMAL, 6 MG QD TRANSDERMAL
     Route: 062
     Dates: start: 20100408, end: 20100714
  5. NEUPRO [Suspect]
     Indication: PARKINSON'S DISEASE
     Dosage: (2 MG QD TRANSDERMAL), 4 MG QD TRANSDERMAL, 6 MG QD TRANSDERMAL
     Route: 062
     Dates: start: 20100715, end: 20100813
  6. NEUPRO [Suspect]
     Indication: PARKINSON'S DISEASE
     Dosage: (2 MG QD TRANSDERMAL), 4 MG QD TRANSDERMAL, 6 MG QD TRANSDERMAL
     Route: 062
     Dates: start: 20100814, end: 20100831
  7. NEUPRO [Suspect]
     Indication: PARKINSON'S DISEASE
     Dosage: (2 MG QD TRANSDERMAL), 4 MG QD TRANSDERMAL, 6 MG QD TRANSDERMAL
     Route: 062
     Dates: start: 20100901
  8. CARBIDOPA + LEVODOPA [Concomitant]

REACTIONS (3)
  - ATRIAL FIBRILLATION [None]
  - ELECTROCARDIOGRAM ABNORMAL [None]
  - HYPERKALAEMIA [None]
